FAERS Safety Report 13735085 (Version 1)
Quarter: 2017Q3

REPORT INFORMATION
  Report Type: Spontaneous
  Country: US (occurrence: US)
  Receive Date: 20170710
  Receipt Date: 20170710
  Transmission Date: 20171127
  Serious: No
  Sender: FDA-Public Use
  Company Number: US-THE MEDICINES COMPANY-US-MDCO-16-00216

PATIENT
  Sex: Male

DRUGS (2)
  1. IONSYS [Suspect]
     Active Substance: FENTANYL HYDROCHLORIDE
     Indication: PRODUCT USED FOR UNKNOWN INDICATION
     Dosage: NOT REPORTED
     Dates: start: 20160615
  2. IONSYS [Suspect]
     Active Substance: FENTANYL HYDROCHLORIDE
     Dosage: NOT REPORTED
     Dates: start: 20160615

REACTIONS (5)
  - Medication error [Unknown]
  - Product tampering [Unknown]
  - Application site irritation [Unknown]
  - Application site erythema [Unknown]
  - Device malfunction [Unknown]

NARRATIVE: CASE EVENT DATE: 20160615
